FAERS Safety Report 6030326-X (Version None)
Quarter: 2009Q1

REPORT INFORMATION
  Report Type: 
  Country: None (occurrence: None)
  Receive Date: 20090107
  Receipt Date: 20080701
  Transmission Date: 20090719
  Serious: No
  Sender: FDA-Public Use
  Company Number: US-BAYER-200812957BCC

PATIENT
  Age: 20 Year
  Sex: Female
  Weight: 45 kg

DRUGS (3)
  1. ALEVE [Suspect]
     Indication: DYSMENORRHOEA
     Dosage: TOTAL DAILY DOSE: 440 MG  UNIT DOSE: 220 MG
     Route: 048
     Dates: start: 20080630
  2. MIDOL [Suspect]
     Indication: DYSMENORRHOEA
     Dosage: UNIT DOSE: 1 DF
     Route: 048
     Dates: start: 20080630, end: 20080630
  3. ADDERALL 10 [Concomitant]

REACTIONS (2)
  - DYSMENORRHOEA [None]
  - SOMNOLENCE [None]
